FAERS Safety Report 16115269 (Version 1)
Quarter: 2019Q1

REPORT INFORMATION
  Report Type: Spontaneous
  Country: CN (occurrence: CN)
  Receive Date: 20190325
  Receipt Date: 20190325
  Transmission Date: 20190418
  Serious: Yes (Other)
  Sender: FDA-Public Use
  Company Number: CN-PFIZER INC-2019122800

PATIENT
  Sex: Female

DRUGS (2)
  1. CRIZOTINIB [Suspect]
     Active Substance: CRIZOTINIB
     Indication: LUNG ADENOCARCINOMA
     Dosage: 250 MG, 2X/DAY
     Route: 048
     Dates: start: 201712, end: 201804
  2. CRIZOTINIB [Suspect]
     Active Substance: CRIZOTINIB
     Dosage: 250 MG, DAILY
     Route: 048
     Dates: start: 201805

REACTIONS (5)
  - Supraventricular extrasystoles [Not Recovered/Not Resolved]
  - Sinus bradycardia [Recovered/Resolved]
  - Sinus arrest [Recovered/Resolved]
  - Sinus arrhythmia [Not Recovered/Not Resolved]
  - Nodal rhythm [Recovered/Resolved]

NARRATIVE: CASE EVENT DATE: 201801
